FAERS Safety Report 9836425 (Version 1)
Quarter: 2014Q1

REPORT INFORMATION
  Report Type: Spontaneous
  Country: US (occurrence: US)
  Receive Date: 20140123
  Receipt Date: 20140123
  Transmission Date: 20141002
  Serious: No
  Sender: FDA-Public Use
  Company Number: US-BIOGENIDEC-2014BI006297

PATIENT
  Age: 61 Year
  Sex: Female

DRUGS (2)
  1. AVONEX [Suspect]
     Indication: MULTIPLE SCLEROSIS
     Route: 030
     Dates: start: 20011001
  2. AVONEX [Suspect]
     Indication: MULTIPLE SCLEROSIS
     Route: 030
     Dates: start: 20140116

REACTIONS (12)
  - Somnolence [Recovered/Resolved]
  - Eye injury [Recovered/Resolved]
  - Fall [Recovered/Resolved]
  - Eye haemorrhage [Recovered/Resolved]
  - Hypotonia [Recovered/Resolved]
  - Sudden onset of sleep [Recovered/Resolved]
  - Hypoaesthesia [Recovered/Resolved]
  - Adverse event [Recovered/Resolved]
  - Influenza like illness [Recovered/Resolved]
  - Muscular weakness [Recovered/Resolved]
  - Headache [Recovered/Resolved]
  - Bone pain [Recovered/Resolved]
